FAERS Safety Report 20458821 (Version 1)
Quarter: 2022Q1

REPORT INFORMATION
  Report Type: Spontaneous
  Country: FR (occurrence: FR)
  Receive Date: 20220211
  Receipt Date: 20220211
  Transmission Date: 20220423
  Serious: Yes (Other)
  Sender: FDA-Public Use
  Company Number: None

PATIENT
  Age: 47 Year
  Sex: Female
  Weight: 61 kg

DRUGS (1)
  1. ELIQUIS [Suspect]
     Active Substance: APIXABAN
     Indication: Deep vein thrombosis
     Dosage: 10 MILLIGRAM, DAILY (FREQUENCY NOT REPORTED)
     Route: 048
     Dates: start: 20210911, end: 20220113

REACTIONS (2)
  - Spontaneous haematoma [Recovered/Resolved]
  - Thrombocytopenia [Recovered/Resolved]
